FAERS Safety Report 10234126 (Version 1)
Quarter: 2014Q2

REPORT INFORMATION
  Report Type: Spontaneous
  Country: US (occurrence: US)
  Receive Date: 20140612
  Receipt Date: 20140612
  Transmission Date: 20141212
  Serious: Yes (Hospitalization)
  Sender: FDA-Public Use
  Company Number: US-GLAXOSMITHKLINE-A1076296A

PATIENT
  Age: 56 Year
  Sex: Male

DRUGS (2)
  1. VENTOLIN [Suspect]
     Indication: BRONCHIAL DISORDER
     Dosage: 2PUFF AS REQUIRED
     Route: 055
  2. UNKNOWN MEDICATION [Concomitant]

REACTIONS (5)
  - Atrial fibrillation [Not Recovered/Not Resolved]
  - Dyspnoea [Not Recovered/Not Resolved]
  - Cardiac disorder [Not Recovered/Not Resolved]
  - Heart rate increased [Not Recovered/Not Resolved]
  - Drug ineffective [Not Recovered/Not Resolved]
